FAERS Safety Report 8837881 (Version 1)
Quarter: 2012Q4

REPORT INFORMATION
  Report Type: 
  Country: US (occurrence: US)
  Receive Date: 20121012
  Receipt Date: 20121012
  Transmission Date: 20130627
  Serious: Yes (Hospitalization)
  Sender: FDA-Public Use
  Company Number: US-BAYER-2012-104017

PATIENT
  Age: 20 Year
  Sex: Female
  Weight: 126.98 kg

DRUGS (4)
  1. YAZ [Suspect]
  2. ALBUTEROL [Concomitant]
  3. HYPNOTICS AND SEDATIVES [Concomitant]
  4. FEXOFENADINE [Concomitant]

REACTIONS (1)
  - Pulmonary embolism [None]
